FAERS Safety Report 7959116-5 (Version None)
Quarter: 2011Q4

REPORT INFORMATION
  Report Type: 
  Country: None (occurrence: None)
  Receive Date: 20111206
  Receipt Date: 20111129
  Transmission Date: 20120403
  Serious: Yes (Hospitalization)
  Sender: FDA-Public Use
  Company Number: FR-B.I. PHARMACEUTICALS,INC./RIDGEFIELD-2011-FF-01118FF

PATIENT
  Sex: Female

DRUGS (22)
  1. NABUMETONE [Suspect]
     Indication: BONE PAIN
     Dates: start: 20101101, end: 20101119
  2. INDOMETHACIN [Suspect]
     Indication: BONE PAIN
     Dates: start: 20101101, end: 20101119
  3. SULINDAC [Suspect]
     Indication: BONE PAIN
     Dates: start: 20101101, end: 20101119
  4. MOBIC [Suspect]
     Indication: BONE PAIN
     Dates: start: 20101101, end: 20101119
  5. IBUPROFEN [Suspect]
     Indication: BONE PAIN
     Dates: start: 20101101, end: 20101119
  6. ACECLOFENAC [Suspect]
     Indication: BONE PAIN
     Dates: start: 20101101, end: 20101119
  7. TIAPROFENIC ACID [Suspect]
     Indication: BONE PAIN
     Dates: start: 20101101, end: 20101119
  8. STEROGYL [Concomitant]
  9. LODINE [Suspect]
     Indication: BONE PAIN
     Dates: start: 20101101, end: 20101119
  10. ACEBUTOLOL [Concomitant]
  11. PRAVASTATIN [Concomitant]
  12. PLAVIX [Concomitant]
  13. NIFLURIL [Suspect]
     Indication: BONE PAIN
     Dates: start: 20101101, end: 20101119
  14. PIROXICAM [Suspect]
     Indication: BONE PAIN
     Dates: start: 20101101, end: 20101119
  15. MINALFENE [Suspect]
     Indication: BONE PAIN
     Dates: start: 20101101, end: 20101119
  16. KETOPROFEN [Suspect]
     Indication: BONE PAIN
     Dates: start: 20101101, end: 20101119
  17. RAMIPRIL [Concomitant]
  18. NAPROXEN [Suspect]
     Indication: BONE PAIN
     Dates: start: 20101101, end: 20101119
  19. TENOXICAM [Suspect]
     Indication: BONE PAIN
     Dates: start: 20101101, end: 20101119
  20. LEVOTHYROXINE SODIUM [Concomitant]
  21. DICLOFENAC SODIUM [Suspect]
     Indication: BONE PAIN
     Dates: start: 20101101, end: 20101119
  22. FLURBIPROFEN [Suspect]
     Indication: BONE PAIN
     Dates: start: 20101101, end: 20101119

REACTIONS (5)
  - SPINAL FRACTURE [None]
  - SPINAL COMPRESSION FRACTURE [None]
  - ILEITIS [None]
  - LOWER GASTROINTESTINAL HAEMORRHAGE [None]
  - GASTRITIS EROSIVE [None]
